FAERS Safety Report 20585138 (Version 1)
Quarter: 2022Q1

REPORT INFORMATION
  Report Type: Spontaneous
  Country: CN (occurrence: CN)
  Receive Date: 20220311
  Receipt Date: 20220311
  Transmission Date: 20220424
  Serious: Yes (Hospitalization)
  Sender: FDA-Public Use
  Company Number: CN-BAXTER-2022BAX005504

PATIENT
  Sex: Male
  Weight: 47.5 kg

DRUGS (10)
  1. CYCLOPHOSPHAMIDE [Suspect]
     Active Substance: CYCLOPHOSPHAMIDE
     Indication: Acute lymphocytic leukaemia
     Dosage: NS 500 ML + CYCLOPHOSPHAMIDE 600 MG
     Route: 041
     Dates: start: 20220215, end: 20220215
  2. SODIUM CHLORIDE [Suspect]
     Active Substance: SODIUM CHLORIDE
     Indication: Medication dilution
     Dosage: NS 100 ML + METHOTREXATE 0.6 G
     Route: 042
     Dates: start: 20220213, end: 20220213
  3. SODIUM CHLORIDE [Suspect]
     Active Substance: SODIUM CHLORIDE
     Dosage: NS 500 ML + METHOTREXATE 2.4 G
     Route: 042
     Dates: start: 20220213, end: 20220213
  4. SODIUM CHLORIDE [Suspect]
     Active Substance: SODIUM CHLORIDE
     Dosage: NS 500 ML + METHOTREXATE 3 G
     Route: 042
     Dates: start: 20220213, end: 20220213
  5. SODIUM CHLORIDE [Suspect]
     Active Substance: SODIUM CHLORIDE
     Dosage: NS 100 ML + VINCRISTINE SULFATE 2 MG
     Route: 042
     Dates: start: 20220213, end: 20220213
  6. SODIUM CHLORIDE [Suspect]
     Active Substance: SODIUM CHLORIDE
     Dosage: NS 500 ML + CYCLOPHOSPHAMIDE 600 MG
     Route: 041
     Dates: start: 20220215, end: 20220215
  7. METHOTREXATE [Suspect]
     Active Substance: METHOTREXATE
     Indication: Acute lymphocytic leukaemia
     Dosage: NS 100 ML + METHOTREXATE 0.6 G
     Route: 042
     Dates: start: 20220213, end: 20220213
  8. METHOTREXATE [Suspect]
     Active Substance: METHOTREXATE
     Dosage: NS 500 ML + METHOTREXATE 2.4 G
     Route: 042
     Dates: start: 20220213, end: 20220213
  9. METHOTREXATE [Suspect]
     Active Substance: METHOTREXATE
     Dosage: NS 500 ML + METHOTREXATE 3 G
     Route: 042
     Dates: start: 20220213, end: 20220213
  10. VINCRISTINE SULFATE [Suspect]
     Active Substance: VINCRISTINE SULFATE
     Indication: Acute lymphocytic leukaemia
     Dosage: NS 100 ML + VINCRISTINE SULFATE 2 MG
     Route: 042
     Dates: start: 20220213, end: 20220213

REACTIONS (1)
  - Myelosuppression [Recovered/Resolved]

NARRATIVE: CASE EVENT DATE: 20220223
